FAERS Safety Report 6770248-X (Version None)
Quarter: 2010Q2

REPORT INFORMATION
  Report Type: 
  Country: None (occurrence: None)
  Receive Date: 20100604
  Receipt Date: 20100528
  Transmission Date: 20101027
  Serious: Yes (Hospitalization)
  Sender: FDA-Public Use
  Company Number: FABR-1001049

PATIENT
  Age: 39 Year
  Sex: Female
  Weight: 89.3 kg

DRUGS (19)
  1. FABRAZYME [Suspect]
     Indication: FABRY'S DISEASE
     Dosage: 90 MG,Q3W,INTRAVENOUS
     Route: 042
     Dates: start: 20060210
  2. IBUPROFEN [Concomitant]
  3. BENADRYL [Concomitant]
  4. ACETAMINOPHEN [Concomitant]
  5. PHENERGAN HCL [Concomitant]
  6. SODIUM CHLORIDE [Concomitant]
  7. LAMICTAL [Concomitant]
  8. LISINOPRIL [Concomitant]
  9. NORVASC [Concomitant]
  10. CYCLOBENZAPRINE [Concomitant]
  11. PRILOSEC (OMEPRAZOLE) [Concomitant]
  12. DITROPAN [Concomitant]
  13. NEURONTIN [Concomitant]
  14. ESKALITH [Concomitant]
  15. AMITRIPTYLINE HYDROCHLORIDE [Concomitant]
  16. ZOLPIDEM [Concomitant]
  17. HYDROCODONE BITARTRATE [Concomitant]
  18. VERSED [Concomitant]
  19. FENTANYL-100 [Concomitant]

REACTIONS (11)
  - BACTERAEMIA [None]
  - BACTERIAL INFECTION [None]
  - CHILLS [None]
  - DEVICE RELATED INFECTION [None]
  - INFUSION RELATED REACTION [None]
  - NAUSEA [None]
  - PYREXIA [None]
  - RENAL FAILURE ACUTE [None]
  - STAPHYLOCOCCAL INFECTION [None]
  - TUBULOINTERSTITIAL NEPHRITIS [None]
  - VOMITING [None]
